FAERS Safety Report 17215103 (Version 1)
Quarter: 2019Q4

REPORT INFORMATION
  Report Type: Report from Study
  Country: US (occurrence: US)
  Receive Date: 20191230
  Receipt Date: 20191230
  Transmission Date: 20200122
  Serious: No
  Sender: FDA-Public Use
  Company Number: US-CLOVIS ONCOLOGY-CLO-2019-002051

PATIENT
  Age: 76 Year
  Sex: Female

DRUGS (3)
  1. RUBRACA [Suspect]
     Active Substance: RUCAPARIB CAMSYLATE
     Indication: OVARIAN CANCER
     Dosage: UNK
     Route: 048
     Dates: start: 20190917, end: 20190923
  2. RUBRACA [Suspect]
     Active Substance: RUCAPARIB CAMSYLATE
     Dosage: 600 MG, BID
     Route: 048
     Dates: start: 20190917
  3. RUBRACA [Suspect]
     Active Substance: RUCAPARIB CAMSYLATE
     Dosage: 300MG EVERY MORNING, 600MG EVERY EVENING
     Route: 048
     Dates: start: 20190930

REACTIONS (2)
  - Adverse event [Unknown]
  - Oral herpes [Unknown]

NARRATIVE: CASE EVENT DATE: 201909
